FAERS Safety Report 10470288 (Version 1)
Quarter: 2014Q3

REPORT INFORMATION
  Report Type: Report from Study
  Country: US (occurrence: US)
  Receive Date: 20140923
  Receipt Date: 20140923
  Transmission Date: 20150326
  Serious: Yes (Hospitalization)
  Sender: FDA-Public Use
  Company Number: US-009507513-1409USA010208

PATIENT
  Age: 60 Year
  Sex: Male

DRUGS (3)
  1. CYTOXAN [Suspect]
     Active Substance: CYCLOPHOSPHAMIDE
     Indication: PLASMA CELL MYELOMA
     Dosage: 400 MG, QW
     Route: 048
     Dates: start: 20130607, end: 20130712
  2. DECADRON [Suspect]
     Active Substance: DEXAMETHASONE
     Indication: PLASMA CELL MYELOMA
     Dosage: 40 MG, EVERY 4 WEEKS (ALSO REPORTED AS ON DAY 2-4, 9-12, 17-20)
     Route: 048
     Dates: start: 20130607, end: 20130712
  3. VELCADE [Suspect]
     Active Substance: BORTEZOMIB
     Indication: PLASMA CELL MYELOMA
     Dosage: 1.5 MG/M2, QW
     Route: 058
     Dates: start: 20130607, end: 20130712

REACTIONS (4)
  - Immune thrombocytopenic purpura [Unknown]
  - Body temperature increased [Unknown]
  - Diverticular perforation [Unknown]
  - Peritonitis [Unknown]

NARRATIVE: CASE EVENT DATE: 20130717
